FAERS Safety Report 5517717-8 (Version None)
Quarter: 2007Q4

REPORT INFORMATION
  Report Type: 
  Country: None (occurrence: None)
  Receive Date: 20071113
  Receipt Date: 20071022
  Transmission Date: 20080405
  Serious: No
  Sender: FDA-Public Use
  Company Number: TPA2007A02165

PATIENT

DRUGS (1)
  1. ACTOS [Suspect]
     Dosage: 15 MG, PER ORAL
     Route: 048

REACTIONS (3)
  - DRUG DISPENSING ERROR [None]
  - LEGAL PROBLEM [None]
  - NO ADVERSE DRUG REACTION [None]
